FAERS Safety Report 8763005 (Version 1)
Quarter: 2012Q4

REPORT INFORMATION
  Report Type: Spontaneous
  Country: US (occurrence: None)
  Receive Date: 20120830
  Receipt Date: 20120830
  Transmission Date: 20130627
  Serious: Yes (Hospitalization)
  Sender: FDA-Public Use
  Company Number: None

PATIENT
  Age: 47 Year
  Sex: Female
  Weight: 94 kg

DRUGS (18)
  1. COMPLERA [Suspect]
     Indication: HIV DISEASE
     Dosage: One tab daily PO
     Route: 048
  2. COMPLERA [Suspect]
     Indication: DRUG THERAPY
     Dosage: One tab daily PO
     Route: 048
  3. GLIPIZIDE [Concomitant]
  4. ZOCOR [Concomitant]
  5. METFORMIN [Concomitant]
  6. HUMALOG 75/25 [Concomitant]
  7. LISINOPRIL [Concomitant]
  8. LOVAZA [Concomitant]
  9. FENOFIBRATE [Concomitant]
  10. DESMOPRESSIN [Concomitant]
  11. SEVELAMER [Concomitant]
  12. ERGOCALCIFEROL [Concomitant]
  13. NOVOLOG [Concomitant]
  14. NEXIUM [Concomitant]
  15. METOCLOPRAMIDE [Concomitant]
  16. SODIUM BICARBONATE [Concomitant]
  17. HEPARIN [Concomitant]
  18. PNEUMOVAX [Concomitant]

REACTIONS (2)
  - Abdominal pain [None]
  - Renal failure acute [None]
